FAERS Safety Report 17895906 (Version 1)
Quarter: 2020Q2

REPORT INFORMATION
  Report Type: Spontaneous
  Country: US (occurrence: US)
  Receive Date: 20200615
  Receipt Date: 20200615
  Transmission Date: 20200714
  Serious: No
  Sender: FDA-Public Use
  Company Number: US-JNJFOC-20200618526

PATIENT
  Sex: Female
  Weight: 57.2 kg

DRUGS (1)
  1. STELARA [Suspect]
     Active Substance: USTEKINUMAB
     Indication: PRODUCT USED FOR UNKNOWN INDICATION
     Route: 030

REACTIONS (4)
  - Muscle fatigue [Unknown]
  - Muscle tightness [Unknown]
  - Off label use [Unknown]
  - Incorrect route of product administration [Unknown]
